FAERS Safety Report 7750295-1 (Version None)
Quarter: 2011Q3

REPORT INFORMATION
  Report Type: 
  Country: None (occurrence: None)
  Receive Date: 20110914
  Receipt Date: 20110901
  Transmission Date: 20111222
  Serious: Yes (Hospitalization, Other)
  Sender: FDA-Public Use
  Company Number: US-ELI_LILLY_AND_COMPANY-US201109001357

PATIENT
  Sex: Female

DRUGS (6)
  1. VITAMIN D [Concomitant]
  2. FORTEO [Suspect]
     Indication: OSTEOPOROSIS
     Dosage: 20 UG, UNK
  3. BETAPACE [Concomitant]
     Indication: CARDIAC DISORDER
     Dosage: 40 MG, QD
  4. PROTONIX [Concomitant]
  5. ASPIRIN [Concomitant]
  6. LIBRIUM [Concomitant]

REACTIONS (5)
  - OSTEOPOROSIS [None]
  - EXTRASYSTOLES [None]
  - BACK PAIN [None]
  - ANXIETY [None]
  - ASTHENIA [None]
